FAERS Safety Report 8518042 (Version 3)
Quarter: 2013Q1

REPORT INFORMATION
  Report Type: Spontaneous
  Country: US (occurrence: US)
  Receive Date: 20120417
  Receipt Date: 20130318
  Transmission Date: 20140127
  Serious: No
  Sender: FDA-Public Use
  Company Number: US-ASTRAZENECA-2012SE05713

PATIENT
  Age: 70 Year
  Sex: Female

DRUGS (4)
  1. NEXIUM [Suspect]
     Route: 048
  2. PRILOSEC OTC [Suspect]
     Route: 048
  3. BLOOD PRESSURE MEDICATION [Suspect]
     Indication: BLOOD PRESSURE ABNORMAL
     Route: 065
  4. ALBUTEROL [Concomitant]

REACTIONS (5)
  - Sinusitis [Unknown]
  - Pruritus generalised [Unknown]
  - Sleep disorder [Unknown]
  - Abdominal discomfort [Unknown]
  - Drug ineffective [Unknown]
